FAERS Safety Report 18730306 (Version 1)
Quarter: 2021Q1

REPORT INFORMATION
  Report Type: Spontaneous
  Country: US (occurrence: US)
  Receive Date: 20210112
  Receipt Date: 20210112
  Transmission Date: 20210419
  Serious: Yes (Death)
  Sender: FDA-Public Use
  Company Number: US-PFIZER INC-2020042463

PATIENT
  Age: 68 Year
  Sex: Male

DRUGS (2)
  1. VYNDAMAX [Suspect]
     Active Substance: TAFAMIDIS
     Indication: AMYLOIDOSIS
  2. VYNDAMAX [Suspect]
     Active Substance: TAFAMIDIS
     Indication: RESTRICTIVE CARDIOMYOPATHY
     Dosage: 61 MG

REACTIONS (1)
  - Death [Fatal]
